FAERS Safety Report 15753182 (Version 1)
Quarter: 2018Q4

REPORT INFORMATION
  Report Type: Spontaneous
  Country: FR (occurrence: FR)
  Receive Date: 20181222
  Receipt Date: 20181222
  Transmission Date: 20190205
  Serious: Yes (Hospitalization, Other)
  Sender: FDA-Public Use
  Company Number: FR-AUROBINDO-AUR-APL-2018-060922

PATIENT
  Age: 80 Year
  Sex: Female

DRUGS (3)
  1. FLUDEX                             /00340101/ [Suspect]
     Active Substance: INDAPAMIDE
     Indication: HYPERTENSION
     Dosage: UNK
     Route: 048
     Dates: end: 20181119
  2. PACLITAXEL. [Suspect]
     Active Substance: PACLITAXEL
     Indication: CERVIX CARCINOMA
     Dosage: 264 MILLIGRAM
     Route: 042
     Dates: start: 20181015, end: 20181015
  3. CARBOPLATIN. [Suspect]
     Active Substance: CARBOPLATIN
     Indication: CERVIX CARCINOMA
     Dosage: 450 MILLIGRAM
     Route: 042
     Dates: start: 20181015, end: 20181015

REACTIONS (3)
  - Hypokalaemia [Not Recovered/Not Resolved]
  - Hypochloraemia [Not Recovered/Not Resolved]
  - Hyponatraemia [Not Recovered/Not Resolved]

NARRATIVE: CASE EVENT DATE: 20181119
